FAERS Safety Report 9105909 (Version 3)
Quarter: 2013Q4

REPORT INFORMATION
  Report Type: Spontaneous
  Country: FR (occurrence: FR)
  Receive Date: 20130221
  Receipt Date: 20131003
  Transmission Date: 20140711
  Serious: Yes (Hospitalization)
  Sender: FDA-Public Use
  Company Number: FR-B.I. PHARMACEUTICALS,INC./RIDGEFIELD-2013-FF-00106FF

PATIENT
  Age: 77 Year
  Sex: Male

DRUGS (8)
  1. PRADAXA [Suspect]
     Indication: ATRIAL FIBRILLATION
     Dosage: 300 MG
     Route: 048
     Dates: start: 20121210, end: 20130110
  2. IKOREL [Concomitant]
     Route: 048
  3. TEMESTA [Concomitant]
     Route: 048
  4. CERIS [Concomitant]
     Route: 048
  5. CORDARONE [Concomitant]
     Route: 048
  6. AMLOR [Concomitant]
     Route: 048
  7. CRESTOR [Concomitant]
     Dosage: 20 MG
     Route: 048
  8. LODOZ [Concomitant]
     Route: 048

REACTIONS (3)
  - Thrombocytopenia [Recovered/Resolved]
  - Epistaxis [Recovered/Resolved]
  - Gingival bleeding [Recovered/Resolved]
